FAERS Safety Report 13973391 (Version 2)
Quarter: 2017Q4

REPORT INFORMATION
  Report Type: Spontaneous
  Country: CN (occurrence: CN)
  Receive Date: 20170915
  Receipt Date: 20171120
  Transmission Date: 20180321
  Serious: Yes (Other)
  Sender: FDA-Public Use
  Company Number: CN-AMGEN-CHNSP2017139002

PATIENT
  Age: 54 Year
  Sex: Female

DRUGS (1)
  1. ENBREL [Suspect]
     Active Substance: ETANERCEPT
     Indication: ANKYLOSING SPONDYLITIS
     Dosage: 25 MG, 2X/WEEK
     Route: 058
     Dates: start: 201705, end: 20171112

REACTIONS (9)
  - Rhinitis [Unknown]
  - Angina pectoris [Recovered/Resolved]
  - Cardiac discomfort [Recovered/Resolved]
  - Chest discomfort [Recovered/Resolved]
  - Otitis media [Unknown]
  - Rash [Unknown]
  - Hypertension [Unknown]
  - Pruritus [Unknown]
  - Drug eruption [Unknown]
